FAERS Safety Report 21578000 (Version 1)
Quarter: 2022Q4

REPORT INFORMATION
  Report Type: Spontaneous
  Country: DE (occurrence: DE)
  Receive Date: 20221110
  Receipt Date: 20221110
  Transmission Date: 20230113
  Serious: Yes (Hospitalization)
  Sender: FDA-Public Use
  Company Number: DE-ADRED-05806-01

PATIENT
  Age: 33 Year
  Sex: Male
  Weight: 80 kg

DRUGS (2)
  1. TRAMADOL [Suspect]
     Active Substance: TRAMADOL
     Indication: Product used for unknown indication
     Dosage: 200 MG, 2-0-0-0 EXTENDED-RELEASE TABLETS
     Route: 048
  2. PIPAMPERONE HYDROCHLORIDE [Concomitant]
     Active Substance: PIPAMPERONE HYDROCHLORIDE
     Dosage: 40 MG, 2-0-0-0, TABLET
     Route: 048

REACTIONS (2)
  - Drug dependence [Unknown]
  - Product prescribing error [Unknown]

NARRATIVE: CASE EVENT DATE: 20160701
